FAERS Safety Report 10797092 (Version 1)
Quarter: 2015Q1

REPORT INFORMATION
  Report Type: Spontaneous
  Country: US (occurrence: US)
  Receive Date: 20150216
  Receipt Date: 20150216
  Transmission Date: 20150721
  Serious: Yes (Hospitalization, Other)
  Sender: FDA-Public Use
  Company Number: US-ABBVIE-15P-163-1346788-00

PATIENT
  Sex: Male

DRUGS (2)
  1. FORTESTA [Suspect]
     Active Substance: TESTOSTERONE
     Indication: PRODUCT USED FOR UNKNOWN INDICATION
     Route: 065
     Dates: start: 201305, end: 201404
  2. ANDROGEL [Suspect]
     Active Substance: TESTOSTERONE
     Indication: PRODUCT USED FOR UNKNOWN INDICATION
     Route: 065
     Dates: start: 201203, end: 201404

REACTIONS (7)
  - Cerebral disorder [Unknown]
  - Fear [Unknown]
  - Social problem [Unknown]
  - Impaired work ability [Unknown]
  - Cerebrovascular accident [Unknown]
  - Anhedonia [Unknown]
  - Loss of employment [Unknown]

NARRATIVE: CASE EVENT DATE: 20140309
